FAERS Safety Report 8492569-5 (Version None)
Quarter: 2012Q3

REPORT INFORMATION
  Report Type: 
  Country: None (occurrence: None)
  Receive Date: 20120706
  Receipt Date: 20120629
  Transmission Date: 20120928
  Serious: Yes (Hospitalization)
  Sender: FDA-Public Use
  Company Number: US-ABBOTT-12P-163-0932714-00

PATIENT
  Sex: Female

DRUGS (9)
  1. FOLIC ACID [Concomitant]
     Indication: PRODUCT USED FOR UNKNOWN INDICATION
     Dosage: 1MG DAILY
  2. HUMIRA [Suspect]
  3. COUMADIN [Concomitant]
     Indication: ATRIAL FIBRILLATION
     Dosage: 5MG, 4 DAYS - 1 PILL DAILY, 2 DAYS 1/2 PILL DAILY REPEATING PATTERN
  4. LASIX [Concomitant]
     Indication: HYPERTENSION
     Dosage: 40MG DAILY
     Route: 048
  5. HUMIRA [Suspect]
     Indication: PSORIASIS
     Dosage: LOADING DOSE
     Route: 058
     Dates: start: 20120501, end: 20120501
  6. METOPROLOL [Concomitant]
     Indication: HYPERTENSION
     Route: 048
  7. LASIX [Concomitant]
     Indication: CARDIAC FAILURE CONGESTIVE
  8. METFORMIN HCL [Concomitant]
     Indication: DIABETES MELLITUS
     Route: 048
  9. POTASSIUM [Concomitant]
     Indication: ILL-DEFINED DISORDER
     Route: 048

REACTIONS (9)
  - WEIGHT INCREASED [None]
  - FLUID RETENTION [None]
  - JOINT SWELLING [None]
  - FATIGUE [None]
  - SKIN PLAQUE [None]
  - DYSPNOEA [None]
  - CARDIAC FAILURE [None]
  - OEDEMA PERIPHERAL [None]
  - BLOOD CHOLESTEROL ABNORMAL [None]
